FAERS Safety Report 5905900-9 (Version None)
Quarter: 2008Q4

REPORT INFORMATION
  Report Type: 
  Country: None (occurrence: None)
  Receive Date: 20081002
  Receipt Date: 20080929
  Transmission Date: 20090506
  Serious: Yes (Hospitalization)
  Sender: FDA-Public Use
  Company Number: US-ASTRAZENECA-2008UW20615

PATIENT
  Age: 79 Year
  Sex: Female
  Weight: 54.5 kg

DRUGS (8)
  1. PULMICORT-100 [Suspect]
     Route: 055
  2. BROVANA [Suspect]
     Dosage: 15 UG/2ML TWO TIMES A DAY
     Route: 055
  3. XOPENEX [Suspect]
     Dosage: 0.63 MG/3ML TWO TIMES A DAY
     Route: 055
     Dates: start: 20080701
  4. FUROSEMIDE [Concomitant]
  5. HYDROCHLOROTHIAZIDE [Concomitant]
  6. DIGOXIN [Concomitant]
  7. CARTIA XT [Concomitant]
  8. LISINOPRIL [Concomitant]

REACTIONS (4)
  - BLOOD PRESSURE INCREASED [None]
  - CHRONIC OBSTRUCTIVE PULMONARY DISEASE [None]
  - HEART RATE INCREASED [None]
  - STOMATITIS [None]
